FAERS Safety Report 18911043 (Version 4)
Quarter: 2021Q1

REPORT INFORMATION
  Report Type: Report from Study
  Country: PL (occurrence: PL)
  Receive Date: 20210218
  Receipt Date: 20210311
  Transmission Date: 20210420
  Serious: Yes (Life-Threatening, Hospitalization, Disabling, Other)
  Sender: FDA-Public Use
  Company Number: PL-CELGENEUS-POL-20201006056

PATIENT
  Age: 29 Year
  Sex: Male

DRUGS (37)
  1. KETILEPT [Concomitant]
     Active Substance: QUETIAPINE FUMARATE
     Indication: MENTAL DISORDER
     Route: 065
  2. VENLAFAXINE [Concomitant]
     Active Substance: VENLAFAXINE HYDROCHLORIDE
     Indication: MENTAL DISORDER
     Route: 065
  3. TRIMETHOPRIM/SULFAMETHOXAZOLE [Concomitant]
     Active Substance: SULFAMETHOXAZOLE\TRIMETHOPRIM
     Indication: PRODUCT USED FOR UNKNOWN INDICATION
     Route: 065
  4. PANTOPRAZOLUM [Concomitant]
     Active Substance: PANTOPRAZOLE
     Indication: PROPHYLAXIS
     Route: 048
     Dates: start: 20190411, end: 20190510
  5. TRITTICO CR [Concomitant]
     Active Substance: TRAZODONE HYDROCHLORIDE
     Indication: MULTIPLE SCLEROSIS
     Dosage: 100 MILLIGRAM
     Route: 048
     Dates: start: 20190408, end: 20190804
  6. AMOXICILLIN/CLAVULANIC ACID [Concomitant]
     Active Substance: AMOXICILLIN\CLAVULANIC ACID
     Indication: PRODUCT USED FOR UNKNOWN INDICATION
     Route: 065
  7. CEFTOLOZANE/TAZOBACTAM [Concomitant]
     Active Substance: CEFTOLOZANE SULFATE\TAZOBACTAM SODIUM
     Indication: PRODUCT USED FOR UNKNOWN INDICATION
     Route: 065
  8. MACROMAX [Concomitant]
     Dosage: 500 MILLIGRAM
     Route: 048
     Dates: start: 20181115, end: 20181120
  9. MYDOCAL FORTE [Concomitant]
     Indication: INFECTION
     Dosage: 300 MILLIGRAM
     Route: 048
     Dates: start: 20181115, end: 20181126
  10. AMOTAKS [Concomitant]
     Active Substance: AMOXICILLIN
     Indication: INFECTION
     Dosage: 2000 MILLIGRAM
     Route: 048
     Dates: start: 20181115, end: 20181121
  11. FLUCORTA [Concomitant]
     Indication: ANTIFUNGAL PROPHYLAXIS
     Dosage: 100 MILLIGRAM
     Route: 048
     Dates: start: 20181115, end: 20181121
  12. MIFLONIDE [Concomitant]
     Active Substance: BUDESONIDE
     Indication: INFECTION
     Dosage: 1200 MICROGRAM
     Route: 055
     Dates: start: 20190117, end: 20190123
  13. TRITTICO CR [Concomitant]
     Active Substance: TRAZODONE HYDROCHLORIDE
     Indication: MENTAL DISORDER
  14. VELAXIN ER [Concomitant]
     Indication: MULTIPLE SCLEROSIS
     Dosage: 225 MILLIGRAM
     Route: 048
     Dates: start: 20190408, end: 20190509
  15. ESCITALOPRAM BLUEFISH [Concomitant]
     Indication: MULTIPLE SCLEROSIS
     Dosage: 20 MILLIGRAM
     Route: 048
     Dates: start: 20200208, end: 20200430
  16. OZANIMOD. [Suspect]
     Active Substance: OZANIMOD
     Indication: RELAPSING MULTIPLE SCLEROSIS
     Dosage: 1 MILLIGRAM
     Route: 048
     Dates: start: 20161113
  17. CEFUROXIME SODIUM. [Concomitant]
     Active Substance: CEFUROXIME SODIUM
     Indication: PRODUCT USED FOR UNKNOWN INDICATION
     Route: 065
  18. CIPROFLOXACIN. [Concomitant]
     Active Substance: CIPROFLOXACIN
     Indication: PRODUCT USED FOR UNKNOWN INDICATION
     Route: 065
  19. OLZAPIN [Concomitant]
     Indication: PRODUCT USED FOR UNKNOWN INDICATION
     Dosage: 5 MILLIGRAM
     Route: 065
  20. VELAXIN ER [Concomitant]
     Indication: MENTAL DISORDER
     Dosage: 225 MILLIGRAM
     Route: 048
     Dates: start: 20190510, end: 20200206
  21. OXACILLIN [Concomitant]
     Active Substance: OXACILLIN SODIUM
     Indication: PRODUCT USED FOR UNKNOWN INDICATION
     Route: 065
  22. CLINDAMYCIN. [Concomitant]
     Active Substance: CLINDAMYCIN
     Indication: PRODUCT USED FOR UNKNOWN INDICATION
     Route: 065
  23. VITAMIN D3 [Concomitant]
     Active Substance: CHOLECALCIFEROL
     Indication: PROPHYLAXIS
     Dosage: 4000 IU (INTERNATIONAL UNIT)
     Route: 048
     Dates: start: 20190520, end: 20200701
  24. CEFTAZIDIME. [Concomitant]
     Active Substance: CEFTAZIDIME
     Indication: PRODUCT USED FOR UNKNOWN INDICATION
     Route: 065
  25. CEFEPIME [Concomitant]
     Active Substance: CEFEPIME HYDROCHLORIDE
     Indication: PRODUCT USED FOR UNKNOWN INDICATION
     Route: 065
  26. ERYTHROMYCIN. [Concomitant]
     Active Substance: ERYTHROMYCIN
     Indication: PRODUCT USED FOR UNKNOWN INDICATION
     Route: 065
  27. SOLU?MEDROL [Concomitant]
     Active Substance: METHYLPREDNISOLONE SODIUM SUCCINATE
     Indication: PRODUCT USED FOR UNKNOWN INDICATION
     Dosage: 1000 MILLIGRAM
     Route: 041
     Dates: start: 20190525, end: 20190527
  28. PIPERACILLIN/TAZOBACTAM [Concomitant]
     Active Substance: PIPERACILLIN SODIUM\TAZOBACTAM SODIUM
     Indication: PRODUCT USED FOR UNKNOWN INDICATION
     Route: 065
  29. CEFOPERAZONE/SULBACTAM [Concomitant]
     Active Substance: CEFOPERAZONE\SULBACTAM
     Indication: PRODUCT USED FOR UNKNOWN INDICATION
     Route: 065
  30. OLFEN UNO [Concomitant]
     Active Substance: DICLOFENAC SODIUM
     Indication: INFECTION
     Dosage: 200 MILLIGRAM
     Route: 048
     Dates: start: 20181115, end: 20181126
  31. MIFLONIDE [Concomitant]
     Active Substance: BUDESONIDE
     Indication: BRONCHITIS
     Dosage: 400 MICROGRAM
     Route: 055
     Dates: start: 20190408, end: 20190511
  32. CEFALEXIN [Concomitant]
     Active Substance: CEPHALEXIN
     Indication: PRODUCT USED FOR UNKNOWN INDICATION
     Route: 065
  33. CEFTRIAXONE. [Concomitant]
     Active Substance: CEFTRIAXONE
     Indication: PRODUCT USED FOR UNKNOWN INDICATION
     Route: 065
  34. ERTAPENEM. [Concomitant]
     Active Substance: ERTAPENEM SODIUM
     Indication: PRODUCT USED FOR UNKNOWN INDICATION
     Route: 065
  35. MEROPENEM. [Concomitant]
     Active Substance: MEROPENEM
     Indication: PRODUCT USED FOR UNKNOWN INDICATION
     Dosage: 6 GRAM
     Route: 041
     Dates: start: 20201031
  36. MACROMAX [Concomitant]
     Indication: INFECTION
     Dosage: 500 MILLIGRAM
     Route: 048
     Dates: start: 20170130, end: 20170201
  37. ESSENTIALE FORTE [Concomitant]
     Indication: PROPHYLAXIS
     Route: 048
     Dates: start: 20181126

REACTIONS (5)
  - Multiple injuries [Recovered/Resolved with Sequelae]
  - Circulatory collapse [Recovered/Resolved]
  - Hypovolaemic shock [Recovered/Resolved]
  - Septic shock [Recovered/Resolved]
  - Respiratory failure [Recovered/Resolved]

NARRATIVE: CASE EVENT DATE: 20201017
